FAERS Safety Report 15843007 (Version 3)
Quarter: 2021Q2

REPORT INFORMATION
  Report Type: Report from Study
  Country: CA (occurrence: CA)
  Receive Date: 20190118
  Receipt Date: 20210624
  Transmission Date: 20210716
  Serious: Yes (Other)
  Sender: FDA-Public Use
  Company Number: CA-JNJFOC-20190117127

PATIENT
  Age: 22 Year
  Sex: Female
  Weight: 56.7 kg

DRUGS (4)
  1. STELARA [Suspect]
     Active Substance: USTEKINUMAB
     Route: 058
     Dates: start: 201906
  2. STELARA [Suspect]
     Active Substance: USTEKINUMAB
     Route: 058
     Dates: start: 20190111
  3. STELARA [Suspect]
     Active Substance: USTEKINUMAB
     Indication: CROHN^S DISEASE
     Dosage: INDUCTION 390 MG IV DONE PREVIOUSLY
     Route: 058
     Dates: start: 20181116
  4. STELARA [Suspect]
     Active Substance: USTEKINUMAB
     Dosage: LATEST DOSE RECEIVED ON 01/JUN/2021
     Route: 058

REACTIONS (6)
  - Anorectal disorder [Unknown]
  - Product use issue [Unknown]
  - Crohn^s disease [Unknown]
  - Fistula [Unknown]
  - Rectal abscess [Unknown]
  - Off label use [Unknown]

NARRATIVE: CASE EVENT DATE: 20181205
